FAERS Safety Report 15822993 (Version 1)
Quarter: 2019Q1

REPORT INFORMATION
  Report Type: Spontaneous
  Country: US (occurrence: US)
  Receive Date: 20190114
  Receipt Date: 20190114
  Transmission Date: 20190417
  Serious: No
  Sender: FDA-Public Use
  Company Number: US-CUTANEA LIFE SCIENCES, INC.-2018CUT000027

PATIENT

DRUGS (1)
  1. AKTIPAK [Suspect]
     Active Substance: BENZOYL PEROXIDE\ERYTHROMYCIN
     Indication: ACNE
     Dosage: UNK
     Route: 061

REACTIONS (2)
  - Pain [Unknown]
  - Product packaging issue [Unknown]
